FAERS Safety Report 22287472 (Version 1)
Quarter: 2023Q2

REPORT INFORMATION
  Report Type: Other
  Country: CA (occurrence: CA)
  Receive Date: 20230505
  Receipt Date: 20230505
  Transmission Date: 20230721
  Serious: Yes (Other)
  Sender: FDA-Public Use
  Company Number: CA-APOTEX-2023AP007667

PATIENT
  Age: 74 Year
  Sex: Female

DRUGS (10)
  1. CLONAZEPAM [Suspect]
     Active Substance: CLONAZEPAM
     Indication: Nystagmus
     Dosage: UNK
     Route: 065
  2. CLONAZEPAM [Suspect]
     Active Substance: CLONAZEPAM
     Indication: Neurotoxicity
  3. BACLOFEN [Suspect]
     Active Substance: BACLOFEN
     Indication: Nystagmus
     Dosage: UNK
     Route: 065
  4. BACLOFEN [Suspect]
     Active Substance: BACLOFEN
     Indication: Neurotoxicity
  5. GABAPENTIN [Suspect]
     Active Substance: GABAPENTIN
     Indication: Nystagmus
     Dosage: UNK
     Route: 065
  6. GABAPENTIN [Suspect]
     Active Substance: GABAPENTIN
     Indication: Neurotoxicity
  7. MEMANTINE [Suspect]
     Active Substance: MEMANTINE
     Indication: Nystagmus
     Dosage: UNK
     Route: 065
  8. MEMANTINE [Suspect]
     Active Substance: MEMANTINE
     Indication: Neurotoxicity
  9. DALFAMPRIDINE [Suspect]
     Active Substance: DALFAMPRIDINE
     Indication: Nystagmus
     Dosage: UNK
     Route: 065
  10. DALFAMPRIDINE [Suspect]
     Active Substance: DALFAMPRIDINE
     Indication: Neurotoxicity

REACTIONS (2)
  - Off label use [Unknown]
  - Drug ineffective for unapproved indication [Unknown]
